FAERS Safety Report 20901801 (Version 7)
Quarter: 2022Q2

REPORT INFORMATION
  Report Type: Report from Study
  Country: AR (occurrence: AR)
  Receive Date: 20220601
  Receipt Date: 20220629
  Transmission Date: 20220720
  Serious: Yes (Hospitalization)
  Sender: FDA-Public Use
  Company Number: AR-GLAXOSMITHKLINE-AR2022086008

PATIENT

DRUGS (7)
  1. DOSTARLIMAB [Suspect]
     Active Substance: DOSTARLIMAB
     Indication: Non-small cell lung cancer
     Dosage: DOSE AT CYCLE 1 - DAY 1
     Route: 042
     Dates: start: 20220331, end: 20220331
  2. DOSTARLIMAB [Suspect]
     Active Substance: DOSTARLIMAB
     Dosage: DOSE AT DAY 1
     Route: 042
     Dates: start: 20220421, end: 20220421
  3. DOSTARLIMAB [Suspect]
     Active Substance: DOSTARLIMAB
     Dosage: DOSE AT DAY 1
     Route: 042
     Dates: start: 20220512, end: 20220512
  4. DOCETAXEL [Suspect]
     Active Substance: DOCETAXEL
     Indication: Non-small cell lung cancer
     Dosage: DOSE AT CYCLE 1 - DAY 1
     Route: 042
     Dates: start: 20220331, end: 20220331
  5. DOCETAXEL [Suspect]
     Active Substance: DOCETAXEL
     Dosage: DOSE AT DAY 1
     Route: 042
     Dates: start: 20220421, end: 20220421
  6. DOCETAXEL [Suspect]
     Active Substance: DOCETAXEL
     Dosage: DOSE AT DAY 1
     Route: 042
     Dates: start: 20220512, end: 20220512
  7. CEPHALEXIN [Concomitant]
     Active Substance: CEPHALEXIN
     Indication: Anal abscess
     Dosage: UNK
     Dates: start: 20220518, end: 20220520

REACTIONS (1)
  - Anal abscess [Recovered/Resolved]

NARRATIVE: CASE EVENT DATE: 20220520
